FAERS Safety Report 20109910 (Version 1)
Quarter: 2021Q4

REPORT INFORMATION
  Report Type: Spontaneous
  Country: US (occurrence: US)
  Receive Date: 20211124
  Receipt Date: 20211124
  Transmission Date: 20220303
  Serious: Yes (Hospitalization, Other)
  Sender: FDA-Public Use
  Company Number: US-ALXN-A202112540

PATIENT
  Sex: Female

DRUGS (2)
  1. SOLIRIS [Suspect]
     Active Substance: ECULIZUMAB
     Indication: Myasthenia gravis
     Dosage: UNK
     Route: 065
  2. PREDNISONE [Concomitant]
     Active Substance: PREDNISONE
     Indication: Product used for unknown indication
     Dosage: UNK
     Route: 065

REACTIONS (12)
  - Acute kidney injury [Unknown]
  - Dyspnoea [Unknown]
  - Fatigue [Unknown]
  - Urinary tract infection [Unknown]
  - Cellulitis [Unknown]
  - Vasculitis [Unknown]
  - Dehydration [Unknown]
  - Formication [Unknown]
  - Foot fracture [Unknown]
  - Muscular weakness [Unknown]
  - Blood glucose increased [Unknown]
  - Back pain [Unknown]
